FAERS Safety Report 9607824 (Version 1)
Quarter: 2013Q4

REPORT INFORMATION
  Report Type: Spontaneous
  Country: US (occurrence: None)
  Receive Date: 20131007
  Receipt Date: 20131007
  Transmission Date: 20140711
  Serious: Yes (Hospitalization)
  Sender: FDA-Public Use
  Company Number: None

PATIENT
  Age: 62 Year
  Sex: Male
  Weight: 181.4 kg

DRUGS (1)
  1. EXENATIDE [Suspect]
     Indication: DIABETES MELLITUS
     Dosage: 10MCG, BID, SQ
     Dates: start: 20090513, end: 20130910

REACTIONS (1)
  - Pancreatitis [None]
